FAERS Safety Report 9689361 (Version 1)
Quarter: 2013Q4

REPORT INFORMATION
  Report Type: Spontaneous
  Country: FR (occurrence: FR)
  Receive Date: 20131114
  Receipt Date: 20131114
  Transmission Date: 20140711
  Serious: Yes (Hospitalization)
  Sender: FDA-Public Use
  Company Number: FR-B.I. PHARMACEUTICALS,INC./RIDGEFIELD-2013-FF-02671FF

PATIENT
  Age: 85 Year
  Sex: Male

DRUGS (6)
  1. PRADAXA [Suspect]
     Indication: ATRIAL FIBRILLATION
     Dosage: 220 MG
     Route: 048
     Dates: start: 201305, end: 201305
  2. PRADAXA [Suspect]
     Dosage: 110 MG
     Route: 048
     Dates: start: 201305, end: 20130812
  3. SOLUPRED [Concomitant]
     Dosage: 10 MG
  4. DECAPEPTYL [Concomitant]
     Route: 058
  5. ZYTIGA [Concomitant]
     Route: 048
  6. PARIET [Concomitant]

REACTIONS (2)
  - Gastrointestinal haemorrhage [Recovered/Resolved]
  - Iron deficiency anaemia [Not Recovered/Not Resolved]
